FAERS Safety Report 9818327 (Version 1)
Quarter: 2014Q1

REPORT INFORMATION
  Report Type: Spontaneous
  Country: US (occurrence: US)
  Receive Date: 20140115
  Receipt Date: 20140115
  Transmission Date: 20141002
  Serious: No
  Sender: FDA-Public Use
  Company Number: US-PFIZER INC-2014010310

PATIENT
  Age: 65 Year
  Sex: Female
  Weight: 73.47 kg

DRUGS (2)
  1. CELEBREX [Suspect]
     Indication: BACK PAIN
     Dosage: UNK, 2X/DAY
     Dates: end: 201310
  2. AMITIZA [Concomitant]
     Indication: CONSTIPATION
     Dosage: UNK

REACTIONS (3)
  - Gastritis [Unknown]
  - Abdominal discomfort [Unknown]
  - Gastric disorder [Unknown]
